FAERS Safety Report 8328635-4 (Version None)
Quarter: 2012Q2

REPORT INFORMATION
  Report Type: 
  Country: None (occurrence: None)
  Receive Date: 20120502
  Receipt Date: 20120425
  Transmission Date: 20120825
  Serious: Yes (Hospitalization)
  Sender: FDA-Public Use
  Company Number: JP-CELGENEUS-087-21880-11012821

PATIENT
  Sex: Male

DRUGS (43)
  1. REVLIMID [Suspect]
     Dosage: 25 MILLIGRAM
     Route: 048
     Dates: start: 20110323, end: 20110329
  2. REVLIMID [Suspect]
     Dosage: 15 MILLIGRAM
     Route: 048
     Dates: start: 20110803, end: 20110804
  3. DEXAMETHASONE ACETATE [Suspect]
     Route: 048
     Dates: start: 20110803, end: 20110809
  4. NISSEKI POLYGLOBIN-N [Concomitant]
     Indication: HYPOGAMMAGLOBULINAEMIA
     Route: 041
     Dates: start: 20110323, end: 20110323
  5. REVLIMID [Suspect]
     Dosage: 25 MILLIGRAM
     Route: 048
     Dates: start: 20110223, end: 20110315
  6. REVLIMID [Suspect]
     Dosage: 15 MILLIGRAM
     Route: 048
     Dates: start: 20111026, end: 20111108
  7. DEXAMETHASONE ACETATE [Suspect]
     Route: 048
     Dates: start: 20111026, end: 20111108
  8. MUCOSTA [Concomitant]
     Indication: PROPHYLAXIS
     Route: 048
     Dates: start: 20110114, end: 20110121
  9. ASPIRIN [Concomitant]
     Indication: PROPHYLAXIS
     Route: 048
     Dates: start: 20110202
  10. URSO 250 [Concomitant]
     Indication: PROPHYLAXIS
     Route: 048
     Dates: start: 20101208
  11. DEXAMETHASONE ACETATE [Suspect]
     Indication: MULTIPLE MYELOMA
     Route: 048
     Dates: start: 20101125, end: 20101214
  12. DEXAMETHASONE ACETATE [Suspect]
     Route: 048
     Dates: start: 20110223, end: 20110323
  13. DEXAMETHASONE ACETATE [Suspect]
     Route: 048
     Dates: start: 20110420, end: 20110420
  14. DEXAMETHASONE ACETATE [Suspect]
     Route: 048
     Dates: start: 20110511, end: 20110525
  15. DEXAMETHASONE ACETATE [Suspect]
     Route: 048
     Dates: start: 20110921, end: 20111011
  16. FAMOTIDINE [Concomitant]
     Indication: PROPHYLAXIS
     Route: 048
     Dates: start: 20101117, end: 20110111
  17. REVLIMID [Suspect]
     Indication: MULTIPLE MYELOMA
     Dosage: 25 MILLIGRAM
     Route: 048
     Dates: start: 20101124, end: 20101214
  18. REVLIMID [Suspect]
     Dosage: 25 MILLIGRAM
     Route: 048
     Dates: start: 20101222, end: 20110111
  19. REVLIMID [Suspect]
     Dosage: 15 MILLIGRAM
     Route: 048
     Dates: start: 20110608, end: 20110628
  20. NISSEKI POLYGLOBIN-N [Concomitant]
     Indication: PROPHYLAXIS
     Route: 041
     Dates: start: 20101222, end: 20101222
  21. REVLIMID [Suspect]
     Dosage: 15 MILLIGRAM
     Route: 048
     Dates: start: 20110706, end: 20110726
  22. REVLIMID [Suspect]
     Dosage: 15 MILLIGRAM
     Route: 048
     Dates: start: 20110921, end: 20111011
  23. DEXAMETHASONE ACETATE [Suspect]
     Route: 048
     Dates: start: 20101223, end: 20110106
  24. DEXAMETHASONE ACETATE [Suspect]
     Route: 048
     Dates: start: 20110608, end: 20110628
  25. ZOVIRAX [Concomitant]
     Indication: PROPHYLAXIS
     Route: 048
     Dates: start: 20110217, end: 20110315
  26. ZOVIRAX [Concomitant]
     Route: 048
     Dates: start: 20110601
  27. REVLIMID [Suspect]
     Dosage: 15 MILLIGRAM
     Route: 048
     Dates: start: 20110420, end: 20110426
  28. DEXAMETHASONE ACETATE [Suspect]
     Route: 048
     Dates: start: 20110127, end: 20110127
  29. DEXAMETHASONE ACETATE [Suspect]
     Route: 048
     Dates: start: 20110203, end: 20110210
  30. DEXAMETHASONE ACETATE [Suspect]
     Route: 048
     Dates: start: 20110907, end: 20110913
  31. DEXAMETHASONE ACETATE [Suspect]
     Route: 048
     Dates: start: 20111123, end: 20111206
  32. FAMOTIDINE [Concomitant]
     Route: 048
     Dates: start: 20110126
  33. REVLIMID [Suspect]
     Dosage: 25 MILLIGRAM
     Route: 048
     Dates: start: 20110126, end: 20110215
  34. REVLIMID [Suspect]
     Dosage: 25 MILLIGRAM
     Route: 048
     Dates: start: 20110406, end: 20110412
  35. REVLIMID [Suspect]
     Dosage: 10 MILLIGRAM
     Route: 048
     Dates: start: 20111123, end: 20111206
  36. DEXAMETHASONE ACETATE [Suspect]
     Route: 048
     Dates: start: 20110406, end: 20110406
  37. DEXAMETHASONE ACETATE [Suspect]
     Route: 048
     Dates: start: 20110706, end: 20110726
  38. REVLIMID [Suspect]
     Dosage: 15 MILLIGRAM
     Route: 048
     Dates: start: 20110511, end: 20110531
  39. REVLIMID [Suspect]
     Dosage: 15 MILLIGRAM
     Route: 048
     Dates: start: 20110907, end: 20110913
  40. COTRIM [Concomitant]
     Indication: PROPHYLAXIS
     Route: 048
     Dates: start: 20100430, end: 20110111
  41. COTRIM [Concomitant]
     Route: 048
     Dates: start: 20110126
  42. GARENOXACIN MESYLATE [Concomitant]
     Indication: PROPHYLAXIS
     Route: 048
     Dates: start: 20110126, end: 20110315
  43. ZOVIRAX [Concomitant]
     Route: 048
     Dates: start: 20110323, end: 20110418

REACTIONS (11)
  - GAMMA-GLUTAMYLTRANSFERASE INCREASED [None]
  - HEPATOBILIARY DISEASE [None]
  - ALANINE AMINOTRANSFERASE INCREASED [None]
  - BRONCHITIS [None]
  - NEUTROPHIL COUNT DECREASED [None]
  - INFLUENZA [None]
  - BRONCHOPNEUMONIA [None]
  - WHITE BLOOD CELL COUNT DECREASED [None]
  - LIVER DISORDER [None]
  - HAEMOGLOBIN DECREASED [None]
  - PLATELET COUNT DECREASED [None]
